FAERS Safety Report 17146438 (Version 2)
Quarter: 2019Q4

REPORT INFORMATION
  Report Type: Spontaneous
  Country: FR (occurrence: FR)
  Receive Date: 20191212
  Receipt Date: 20191218
  Transmission Date: 20200122
  Serious: Yes (Other)
  Sender: FDA-Public Use
  Company Number: FR-MYLANLABS-2019M1122011

PATIENT
  Age: 62 Year
  Sex: Male

DRUGS (11)
  1. CISPLATIN. [Suspect]
     Active Substance: CISPLATIN
     Indication: MALIGNANT NEOPLASM OF PLEURA
     Dosage: UNK, CYCLIC (EVERY 4 WEEKS)
     Route: 065
     Dates: start: 199401
  2. ENDOXAN                            /00021102/ [Suspect]
     Active Substance: CYCLOPHOSPHAMIDE
     Indication: SMALL CELL LUNG CANCER METASTATIC
     Dosage: 22 MONTHS AFTER DIAGNOSIS OF SMALL CELL CARCINOMA
     Route: 065
  3. DOXORUBICIN [Suspect]
     Active Substance: DOXORUBICIN
     Indication: SMALL CELL LUNG CANCER METASTATIC
     Dosage: (ADRIAMYCIN) 22 MONTHS AFTER DIAGNOSIS OF SMALL CELL CARCINOMA
     Route: 065
  4. CYCLOPHOSPHAMIDE. [Suspect]
     Active Substance: CYCLOPHOSPHAMIDE
     Indication: MALIGNANT NEOPLASM OF PLEURA
     Dosage: UNK, CYCLIC (EVERY 4 WEEKS)
     Dates: start: 199401
  5. ENDOXAN                            /00021102/ [Suspect]
     Active Substance: CYCLOPHOSPHAMIDE
     Indication: SMALL CELL CARCINOMA
     Dosage: 5 DOSAGE FORM, CYCLE  (EVERY 4 WEEKS)
     Route: 065
     Dates: start: 199401
  6. DOXORUBICIN [Suspect]
     Active Substance: DOXORUBICIN
     Indication: SMALL CELL CARCINOMA
     Dosage: 5 DOSAGE FORM, CYCLE (EVERY 4 WEEKS)
     Route: 065
     Dates: start: 199401
  7. CELLTOP [Suspect]
     Active Substance: ETOPOSIDE
     Indication: MALIGNANT NEOPLASM OF PLEURA
     Dosage: UNK, CYCLIC (EVERY 4 WEEKS)
     Route: 065
     Dates: start: 199401
  8. CELLTOP [Suspect]
     Active Substance: ETOPOSIDE
     Indication: SMALL CELL CARCINOMA
     Dosage: 22 MONTHS AFTER DIAGNOSIS OF SMALL CELL CARCINOMA
     Route: 065
  9. CISPLATIN. [Suspect]
     Active Substance: CISPLATIN
     Indication: SMALL CELL CARCINOMA
  10. CELLTOP [Suspect]
     Active Substance: ETOPOSIDE
     Indication: SMALL CELL LUNG CANCER METASTATIC
  11. DOXORUBICIN HYDROCHLORIDE. [Suspect]
     Active Substance: DOXORUBICIN HYDROCHLORIDE
     Indication: MALIGNANT NEOPLASM OF PLEURA
     Dosage: 5 UNK, CYCLIC (EVERY 4 WEEKS)
     Dates: start: 199401

REACTIONS (6)
  - Polyneuropathy in malignant disease [Not Recovered/Not Resolved]
  - Intervertebral discitis [Recovered/Resolved]
  - Myalgia [Not Recovered/Not Resolved]
  - Off label use [Unknown]
  - Product use in unapproved indication [Unknown]
  - Therapy partial responder [Unknown]

NARRATIVE: CASE EVENT DATE: 1994
